FAERS Safety Report 10129020 (Version 2)
Quarter: 2014Q2

REPORT INFORMATION
  Report Type: Spontaneous
  Country: US (occurrence: US)
  Receive Date: 20140428
  Receipt Date: 20140609
  Transmission Date: 20141212
  Serious: No
  Sender: FDA-Public Use
  Company Number: US-B.I. PHARMACEUTICALS,INC./RIDGEFIELD-2014-BI-17818BP

PATIENT
  Age: 79 Year
  Sex: Male
  Weight: 206 kg

DRUGS (10)
  1. TRADJENTA [Suspect]
     Indication: DIABETES MELLITUS
     Dosage: 5 MG
     Route: 048
     Dates: start: 20140109, end: 20140416
  2. SIMVASTATIN [Concomitant]
     Indication: HYPERLIPIDAEMIA
     Dosage: 20 MG
     Route: 048
     Dates: start: 20120104, end: 20140109
  3. PROPRANOLOL HCL [Concomitant]
     Indication: HYPERTENSION
     Dosage: 80 MG
     Route: 048
     Dates: start: 20120104, end: 20140109
  4. INDOMETHACIN [Concomitant]
     Dosage: 1800 MG
     Route: 065
     Dates: start: 20121123, end: 20121128
  5. GLYBURIDE AND METFORMIN COMBINATION [Concomitant]
     Indication: TYPE 2 DIABETES MELLITUS
     Dosage: 5-500 MG
     Route: 048
     Dates: start: 20120104, end: 20140109
  6. DIOVAN HCT [Concomitant]
     Indication: HYPERTENSION
     Dosage: 320-25 MG
     Route: 048
     Dates: start: 20140104, end: 20140109
  7. CLONIDINE HCL [Concomitant]
     Indication: HYPERTENSION
     Dosage: 0.6 MG
     Route: 065
     Dates: start: 20120104, end: 20140109
  8. BYSTOLIC [Concomitant]
     Indication: HYPERTENSION
     Dosage: 10 MG
     Route: 048
     Dates: start: 20121128, end: 20140109
  9. ASPIRIN [Concomitant]
     Route: 065
     Dates: start: 20120209
  10. ALLOPURINOL [Concomitant]
     Dosage: 100 MG
     Route: 048
     Dates: start: 20121128, end: 20140109

REACTIONS (1)
  - Nightmare [Not Recovered/Not Resolved]
